FAERS Safety Report 9431199 (Version 2)
Quarter: 2013Q3

REPORT INFORMATION
  Report Type: Spontaneous
  Country: IT (occurrence: IT)
  Receive Date: 20130730
  Receipt Date: 20130808
  Transmission Date: 20140515
  Serious: Yes (Hospitalization)
  Sender: FDA-Public Use
  Company Number: IT-ASTRAZENECA-2013SE55758

PATIENT
  Age: 16499 Day
  Sex: Female

DRUGS (5)
  1. SEROQUEL [Suspect]
     Indication: PSYCHOTIC DISORDER
     Route: 048
     Dates: start: 20130510, end: 20130510
  2. PROVISACOR [Suspect]
     Indication: DYSLIPIDAEMIA
     Route: 048
     Dates: start: 20130510, end: 20130510
  3. LEXOTAN [Suspect]
     Indication: ANXIETY
     Route: 048
     Dates: start: 20130510, end: 20130510
  4. SEREUPIN [Suspect]
     Indication: ANXIETY
     Route: 048
     Dates: start: 20130510, end: 20130510
  5. VALDORM [Suspect]
     Indication: INSOMNIA
     Route: 048
     Dates: start: 20130510, end: 20130510

REACTIONS (2)
  - Sopor [Unknown]
  - Overdose [Unknown]
